FAERS Safety Report 21229360 (Version 1)
Quarter: 2022Q3

REPORT INFORMATION
  Report Type: Spontaneous
  Country: US (occurrence: None)
  Receive Date: 20220818
  Receipt Date: 20220818
  Transmission Date: 20221027
  Serious: No
  Sender: FDA-Public Use
  Company Number: 2022A269551

PATIENT
  Age: 75 Year
  Sex: Female

DRUGS (1)
  1. BUDESONIDE\FORMOTEROL\GLYCOPYRRONIUM [Suspect]
     Active Substance: BUDESONIDE\FORMOTEROL\GLYCOPYRRONIUM
     Indication: Chronic obstructive pulmonary disease
     Dosage: 160/ 9/ 4.8 MCG, 2 INHALATIONS 2 TIMES A DAY
     Route: 055
     Dates: start: 202206

REACTIONS (3)
  - Alopecia [Unknown]
  - Alopecia [Unknown]
  - Hair injury [Unknown]

NARRATIVE: CASE EVENT DATE: 20220701
